FAERS Safety Report 16705756 (Version 1)
Quarter: 2019Q4

REPORT INFORMATION
  Report Type: Spontaneous
  Country: US (occurrence: US)
  Receive Date: 20190814
  Receipt Date: 20190814
  Transmission Date: 20200122
  Serious: Yes (Death)
  Sender: FDA-Public Use
  Company Number: None

PATIENT
  Age: 84 Year
  Sex: Male
  Weight: 75.1 kg

DRUGS (16)
  1. PLAVIX [Concomitant]
     Active Substance: CLOPIDOGREL BISULFATE
  2. MAGNESIUM [Concomitant]
     Active Substance: MAGNESIUM
  3. FISH OIL [Concomitant]
     Active Substance: FISH OIL
  4. NOVOLOG [Concomitant]
     Active Substance: INSULIN ASPART
  5. CALCIUM [Concomitant]
     Active Substance: CALCIUM
  6. LISINOPRIL. [Concomitant]
     Active Substance: LISINOPRIL
  7. VENTOLIN HFA [Concomitant]
     Active Substance: ALBUTEROL SULFATE
  8. ADVAIR DSIKUS [Concomitant]
  9. LORAZEPAM. [Concomitant]
     Active Substance: LORAZEPAM
  10. VITAMIN B12 [Concomitant]
     Active Substance: CYANOCOBALAMIN
  11. ATENOLOL. [Concomitant]
     Active Substance: ATENOLOL
  12. GABAPENTIN. [Concomitant]
     Active Substance: GABAPENTIN
  13. LANTUS SOLOSTAR [Concomitant]
     Active Substance: INSULIN GLARGINE
  14. CAPECITABINE. [Suspect]
     Active Substance: CAPECITABINE
     Indication: COLON CANCER
     Route: 048
     Dates: start: 20190714
  15. PRAVASTATIN. [Concomitant]
     Active Substance: PRAVASTATIN
  16. ASPIRIN. [Concomitant]
     Active Substance: ASPIRIN

REACTIONS (1)
  - Death [None]

NARRATIVE: CASE EVENT DATE: 20190731
